FAERS Safety Report 4779157-9 (Version None)
Quarter: 2005Q3

REPORT INFORMATION
  Report Type: 
  Country: None (occurrence: None)
  Receive Date: 20050926
  Receipt Date: 20050826
  Transmission Date: 20060218
  Serious: Yes (Hospitalization, Disabling)
  Sender: FDA-Public Use
  Company Number: US-MERCK-0508USA04965

PATIENT
  Age: 62 Year
  Sex: Female
  Weight: 57 kg

DRUGS (2)
  1. VIOXX [Suspect]
     Indication: BACK PAIN
     Route: 048
     Dates: start: 20030627, end: 20030816
  2. NORVASC [Concomitant]
     Route: 065

REACTIONS (27)
  - ACUTE PRERENAL FAILURE [None]
  - ANAEMIA [None]
  - AZOTAEMIA [None]
  - BACTERAEMIA [None]
  - BLOOD TRIGLYCERIDES INCREASED [None]
  - CORONARY ARTERY DISEASE [None]
  - CORONARY ARTERY OCCLUSION [None]
  - DEHYDRATION [None]
  - DILATATION ATRIAL [None]
  - ECCHYMOSIS [None]
  - ELECTROCARDIOGRAM ABNORMAL [None]
  - ESCHERICHIA INFECTION [None]
  - FALL [None]
  - HEAD INJURY [None]
  - HIGH DENSITY LIPOPROTEIN DECREASED [None]
  - HYDRONEPHROSIS [None]
  - HYPOKALAEMIA [None]
  - INTERVERTEBRAL DISC PROTRUSION [None]
  - LABILE HYPERTENSION [None]
  - MITRAL VALVE CALCIFICATION [None]
  - MYOCARDIAL INFARCTION [None]
  - NEPHROLITHIASIS [None]
  - PELVI-URETERIC OBSTRUCTION [None]
  - PULMONARY HYPERTENSION [None]
  - PULMONARY VALVE INCOMPETENCE [None]
  - URINARY TRACT INFECTION [None]
  - UROSEPSIS [None]
